FAERS Safety Report 15527081 (Version 1)
Quarter: 2018Q4

REPORT INFORMATION
  Report Type: Spontaneous
  Country: GB (occurrence: GB)
  Receive Date: 20181018
  Receipt Date: 20181018
  Transmission Date: 20190205
  Serious: Yes (Hospitalization)
  Sender: FDA-Public Use
  Company Number: GB-DEXPHARM-20180794

PATIENT
  Age: 80 Year
  Sex: Female

DRUGS (12)
  1. TOLTERODINE [Concomitant]
     Active Substance: TOLTERODINE
  2. FERROUS FUMARATE [Concomitant]
     Active Substance: FERROUS FUMARATE
  3. DESMOPRESSIN [Interacting]
     Active Substance: DESMOPRESSIN
  4. ADCAL-D3 [Concomitant]
     Active Substance: CALCIUM CARBONATE\CHOLECALCIFEROL
  5. OMEPRAZOLE. [Interacting]
     Active Substance: OMEPRAZOLE
     Route: 048
     Dates: end: 20180926
  6. CEFALEXIN [Concomitant]
     Active Substance: CEPHALEXIN
  7. SITAGLIPTIN [Concomitant]
     Active Substance: SITAGLIPTIN
  8. AMLODIPINE MALEATE [Concomitant]
     Active Substance: AMLODIPINE MALEATE
  9. LISINOPRIL. [Concomitant]
     Active Substance: LISINOPRIL
  10. ATORVASTATIN [Concomitant]
     Active Substance: ATORVASTATIN
  11. FLUOXETINE HYDROCHLORIDE. [Suspect]
     Active Substance: FLUOXETINE HYDROCHLORIDE
  12. METFORMIN HYDROCHLORIDE. [Concomitant]
     Active Substance: METFORMIN HYDROCHLORIDE

REACTIONS (2)
  - Blood sodium decreased [Not Recovered/Not Resolved]
  - Drug interaction [Not Recovered/Not Resolved]
